FAERS Safety Report 5405438-1 (Version None)
Quarter: 2007Q3

REPORT INFORMATION
  Report Type: 
  Country: None (occurrence: None)
  Receive Date: 20070803
  Receipt Date: 20070723
  Transmission Date: 20080115
  Serious: Yes (Hospitalization)
  Sender: FDA-Public Use
  Company Number: CH-PFIZER INC-2007060114

PATIENT
  Sex: Female

DRUGS (5)
  1. AZITHROMYCIN [Suspect]
     Indication: ACUTE SINUSITIS
     Route: 048
     Dates: start: 20070320, end: 20070323
  2. SINUPRET [Suspect]
     Indication: ACUTE SINUSITIS
     Route: 048
     Dates: start: 20070320, end: 20070323
  3. DAFALGAN [Concomitant]
     Route: 048
     Dates: start: 20070320, end: 20070323
  4. YASMIN [Concomitant]
     Route: 048
  5. DOMPERIDONE [Concomitant]
     Route: 048
     Dates: start: 20070322, end: 20070323

REACTIONS (4)
  - AGITATION [None]
  - ENCEPHALOPATHY [None]
  - EPILEPSY [None]
  - SOMNOLENCE [None]
